FAERS Safety Report 8888493 (Version 2)
Quarter: 2013Q1

REPORT INFORMATION
  Report Type: Report from Study
  Country: CA (occurrence: CA)
  Receive Date: 20121106
  Receipt Date: 20130204
  Transmission Date: 20140127
  Serious: Yes (Death, Hospitalization)
  Sender: FDA-Public Use
  Company Number: CA-ROCHE-1152545

PATIENT
  Sex: Male

DRUGS (6)
  1. RITUXIMAB [Suspect]
     Indication: RHEUMATOID ARTHRITIS
     Dosage: LAST DOSE WAS ON 03/AUG/2012
     Route: 042
     Dates: start: 20120223, end: 20120803
  2. ARAVA [Concomitant]
  3. PREDNISONE [Concomitant]
  4. DIPHENHYDRAMINE HCL [Concomitant]
     Route: 048
     Dates: start: 20120223, end: 20120803
  5. ACETAMINOPHEN [Concomitant]
     Route: 048
     Dates: start: 20120223, end: 20120803
  6. METHYLPREDNISOLONE [Concomitant]
     Route: 042
     Dates: start: 20120223, end: 20120803

REACTIONS (1)
  - Acute leukaemia [Fatal]
